FAERS Safety Report 8548781-X (Version None)
Quarter: 2012Q3

REPORT INFORMATION
  Report Type: 
  Country: None (occurrence: None)
  Receive Date: 20120730
  Receipt Date: 20120719
  Transmission Date: 20120928
  Serious: Yes (Other)
  Sender: FDA-Public Use
  Company Number: CH-NOVOPROD-356366

PATIENT
  Age: 45 Year
  Sex: Male
  Weight: 97 kg

DRUGS (6)
  1. REPAGLINIDE [Concomitant]
     Dosage: ORAL
     Route: 048
  2. CETALLERG [Concomitant]
     Dosage: ORAL
     Route: 048
  3. VICTOZA [Suspect]
     Indication: TYPE 2 DIABETES MELLITUS
     Dosage: 1 DF, QD
     Route: 058
     Dates: start: 20110601, end: 20110615
  4. GLUCOPHAGE [Concomitant]
     Dosage: ORAL
     Route: 048
  5. ASPIRIN [Concomitant]
     Dosage: ORAL
  6. PLAVIX [Concomitant]
     Dosage: ORAL
     Route: 048

REACTIONS (3)
  - RETINAL OEDEMA [None]
  - SCOTOMA [None]
  - PAPILLOEDEMA [None]
